FAERS Safety Report 6823935 (Version 6)
Quarter: 2012Q4

REPORT INFORMATION
  Report Type: Report from Study
  Country: US (occurrence: US)
  Receive Date: 20081126
  Receipt Date: 20121010
  Transmission Date: 20130627
  Serious: Yes (Hospitalization)
  Sender: FDA-Public Use
  Company Number: US-JNJFOC-20081105072

PATIENT
  Age: 12 Year
  Sex: Female
  Weight: 34.7 kg

DRUGS (7)
  1. INFLIXIMAB [Suspect]
     Indication: INFLAMMATORY BOWEL DISEASE
     Route: 042
  2. REMICADE [Suspect]
     Indication: INFLAMMATORY BOWEL DISEASE
     Route: 042
     Dates: start: 20060315, end: 20070301
  3. FOLIC ACID [Concomitant]
     Route: 065
  4. ZOFRAN [Concomitant]
     Route: 065
  5. PROBIOTICS [Concomitant]
     Route: 065
  6. 5-ASA [Concomitant]
     Indication: INFLAMMATORY BOWEL DISEASE
     Route: 048
  7. ANTIBIOTICS [Concomitant]
     Indication: INFLAMMATORY BOWEL DISEASE
     Route: 065

REACTIONS (2)
  - Anal stenosis [Not Recovered/Not Resolved]
  - Retroperitoneal abscess [Recovered/Resolved]
